FAERS Safety Report 18136549 (Version 2)
Quarter: 2020Q3

REPORT INFORMATION
  Report Type: Spontaneous
  Country: US (occurrence: US)
  Receive Date: 20200811
  Receipt Date: 20200921
  Transmission Date: 20201103
  Serious: No
  Sender: FDA-Public Use
  Company Number: US-EMD SERONO-9177042

PATIENT
  Sex: Female

DRUGS (2)
  1. MAVENCLAD [Suspect]
     Active Substance: CLADRIBINE
     Dosage: FIRST COURSE SECOND CYCLE
     Dates: start: 202001
  2. MAVENCLAD [Suspect]
     Active Substance: CLADRIBINE
     Indication: MULTIPLE SCLEROSIS
     Dosage: FIRST COURSE FIRST CYCLE
     Dates: start: 201912

REACTIONS (3)
  - COVID-19 [Unknown]
  - Gastrointestinal disorder [Unknown]
  - Dizziness [Unknown]
